FAERS Safety Report 9420123 (Version 1)
Quarter: 2013Q3

REPORT INFORMATION
  Report Type: Spontaneous
  Country: US (occurrence: US)
  Receive Date: 20130725
  Receipt Date: 20130725
  Transmission Date: 20140515
  Serious: Yes (Other)
  Sender: FDA-Public Use
  Company Number: US-BAYER-2013-089456

PATIENT
  Age: 49 Year
  Sex: Female

DRUGS (14)
  1. YASMIN [Suspect]
  2. CARISOPRODOL [Concomitant]
     Dosage: 350 MG
  3. ALPRAZOLAM [Concomitant]
     Dosage: 2 MG, UNK
  4. TRILEPTAL [Concomitant]
     Dosage: 300 MG, UNK
  5. EFFEXOR [Concomitant]
     Dosage: 75 MG, UNK
  6. WELLBUTRIN [Concomitant]
     Dosage: 300 MG, UNK
  7. LEVAQUIN [Concomitant]
     Dosage: 500 MG, UNK
  8. PROAIR HFA [Concomitant]
  9. BENZONATATE [Concomitant]
     Dosage: 200 MG, UNK
  10. HYDROCODONE/GUAIFENESIN [Concomitant]
     Dosage: 3.5-100/5 ML
  11. BUDEPRION [Concomitant]
     Dosage: 300 MG, UNK
  12. HYDROCODONE/ACETAMINOPHEN [Concomitant]
     Dosage: 10/325
  13. CYCLOBENZAPRINE [Concomitant]
     Dosage: 10 MG, UNK
  14. AMBIEN [Concomitant]
     Dosage: 10 MG, UNK

REACTIONS (4)
  - Pulmonary embolism [None]
  - Deep vein thrombosis [None]
  - Thrombophlebitis superficial [None]
  - Cholelithiasis [None]
